FAERS Safety Report 5521921-2 (Version None)
Quarter: 2007Q4

REPORT INFORMATION
  Report Type: 
  Country: None (occurrence: None)
  Receive Date: 20071120
  Receipt Date: 20061110
  Transmission Date: 20080405
  Serious: No
  Sender: FDA-Public Use
  Company Number: US-BRISTOL-MYERS SQUIBB COMPANY-13575170

PATIENT
  Age: 72 Year
  Sex: Male
  Weight: 103 kg

DRUGS (3)
  1. AVALIDE [Suspect]
     Indication: HYPERTENSION
     Route: 048
     Dates: start: 20000101
  2. MINOXIDIL [Concomitant]
  3. VITAMIN E [Concomitant]

REACTIONS (1)
  - PRURITUS [None]
